FAERS Safety Report 4673624-4 (Version None)
Quarter: 2005Q2

REPORT INFORMATION
  Report Type: 
  Country: None (occurrence: None)
  Receive Date: 20050525
  Receipt Date: 20050513
  Transmission Date: 20051028
  Serious: Yes (Hospitalization, Other)
  Sender: FDA-Public Use
  Company Number: 2005AP02922

PATIENT
  Age: 26108 Day
  Sex: Male
  Weight: 64.5 kg

DRUGS (5)
  1. IRESSA [Suspect]
     Indication: LUNG ADENOCARCINOMA RECURRENT
     Route: 048
     Dates: start: 20041119, end: 20050209
  2. MEXITIL [Concomitant]
     Indication: VENTRICULAR ARRHYTHMIA
     Route: 048
  3. SELBEX [Concomitant]
     Indication: GASTRITIS
     Route: 048
  4. CARBOPLATIN [Concomitant]
     Indication: LUNG NEOPLASM MALIGNANT
     Dosage: DAY ONE - ONE COURSE
     Dates: start: 20041028, end: 20041111
  5. PACLITAXEL [Concomitant]
     Indication: LUNG NEOPLASM MALIGNANT
     Dosage: DAY 1,8,15 - ONE COURSE
     Dates: start: 20041028, end: 20041111

REACTIONS (4)
  - DRUG ERUPTION [None]
  - DYSPNOEA [None]
  - HYPOXIA [None]
  - LUNG DISORDER [None]
